FAERS Safety Report 7995645-6 (Version None)
Quarter: 2011Q4

REPORT INFORMATION
  Report Type: 
  Country: None (occurrence: None)
  Receive Date: 20111220
  Receipt Date: 20111208
  Transmission Date: 20120403
  Serious: Yes (Other)
  Sender: FDA-Public Use
  Company Number: CR-ELI_LILLY_AND_COMPANY-CR201112002337

PATIENT
  Age: 27 Year
  Sex: Female

DRUGS (1)
  1. DULOXETINE HYDROCHLORIDE [Suspect]
     Indication: MAJOR DEPRESSION
     Dosage: 60 MG, QD
     Route: 048
     Dates: start: 20101201, end: 20111122

REACTIONS (3)
  - HEPATITIS [None]
  - SYNCOPE [None]
  - LIVER TENDERNESS [None]
